FAERS Safety Report 15060641 (Version 1)
Quarter: 2018Q2

REPORT INFORMATION
  Report Type: Spontaneous
  Country: US (occurrence: US)
  Receive Date: 20180623
  Receipt Date: 20180623
  Transmission Date: 20180711
  Serious: No
  Sender: FDA-Public Use
  Company Number: None

PATIENT
  Age: 63 Year
  Sex: Female
  Weight: 69.75 kg

DRUGS (8)
  1. LEVOTHYROXIN [Concomitant]
     Active Substance: LEVOTHYROXINE
  2. CZTERZIN [Concomitant]
  3. VITAMIN D [Concomitant]
     Active Substance: CHOLECALCIFEROL
  4. GENERIC NASAL SPRAY [Concomitant]
     Active Substance: UNSPECIFIED INGREDIENT
  5. OMEPRZOLE 20 MG. SANDOZ [Concomitant]
     Active Substance: OMEPRAZOLE
  6. CALCIUM [Concomitant]
     Active Substance: CALCIUM
  7. GLUCOSOME CHONDROTIN [Concomitant]
  8. FLUTICASONE PROPIONATE NASAL SPRAY USP 50 MCG. PER SPRAY [Suspect]
     Active Substance: FLUTICASONE PROPIONATE
     Indication: HYPERSENSITIVITY
     Dosage: ?          OTHER ROUTE:NASAL SPRAY?
     Route: 045

REACTIONS (1)
  - Epistaxis [None]

NARRATIVE: CASE EVENT DATE: 20171204
